FAERS Safety Report 12974363 (Version 1)
Quarter: 2016Q4

REPORT INFORMATION
  Report Type: Spontaneous
  Country: FR (occurrence: FR)
  Receive Date: 20161125
  Receipt Date: 20161125
  Transmission Date: 20170207
  Serious: Yes (Life-Threatening)
  Sender: FDA-Public Use
  Company Number: FR-ROCHE-1858266

PATIENT
  Age: 59 Year
  Sex: Male

DRUGS (15)
  1. AZILECT [Suspect]
     Active Substance: RASAGILINE MESYLATE
     Indication: PARKINSON^S DISEASE
     Route: 048
     Dates: start: 2015, end: 20160920
  2. MODOPAR [Suspect]
     Active Substance: BENSERAZIDE HYDROCHLORIDE\LEVODOPA
     Indication: PARKINSON^S DISEASE
     Dosage: LATER THE DOSE INCREASED BUT DOSE AND DATE NOT SPECIFIED
     Route: 048
     Dates: start: 20160920
  3. VALIUM [Suspect]
     Active Substance: DIAZEPAM
     Dosage: 1-1-2 DF
     Route: 030
  4. LEPONEX [Concomitant]
     Active Substance: CLOZAPINE
     Dosage: 1.5 DF
     Route: 065
  5. MANTADIX [Suspect]
     Active Substance: AMANTADINE HYDROCHLORIDE
     Indication: PARKINSON^S DISEASE
     Route: 048
     Dates: start: 2013, end: 20160920
  6. MODOPAR [Suspect]
     Active Substance: BENSERAZIDE HYDROCHLORIDE\LEVODOPA
     Route: 048
  7. VALIUM [Suspect]
     Active Substance: DIAZEPAM
     Indication: AGITATION
     Route: 030
     Dates: start: 20160920
  8. STALEVO [Suspect]
     Active Substance: CARBIDOPA\ENTACAPONE\LEVODOPA
     Indication: PARKINSON^S DISEASE
     Route: 048
     Dates: start: 2012, end: 20160920
  9. RIVOTRIL [Suspect]
     Active Substance: CLONAZEPAM
     Indication: AGITATION
     Route: 048
     Dates: start: 20160920, end: 20161006
  10. PROPOFOL. [Suspect]
     Active Substance: PROPOFOL
     Indication: GENERAL ANAESTHESIA
     Route: 042
     Dates: start: 20160919, end: 20160919
  11. RITALIN [Suspect]
     Active Substance: METHYLPHENIDATE HYDROCHLORIDE
     Indication: PARKINSON^S DISEASE
     Route: 048
     Dates: start: 201603, end: 20160920
  12. SUFENTA [Suspect]
     Active Substance: SUFENTANIL CITRATE
     Indication: GENERAL ANAESTHESIA
     Route: 042
     Dates: start: 20160919, end: 20160919
  13. LEPONEX [Concomitant]
     Active Substance: CLOZAPINE
     Indication: ANXIETY
     Route: 065
     Dates: start: 20160921
  14. LEPONEX [Concomitant]
     Active Substance: CLOZAPINE
     Dosage: 0.5-0-0.5
     Route: 065
  15. NEUPRO [Suspect]
     Active Substance: ROTIGOTINE
     Indication: PARKINSON^S DISEASE
     Route: 003
     Dates: start: 201205, end: 20160920

REACTIONS (3)
  - Delirium [Recovered/Resolved]
  - Suicide attempt [Recovered/Resolved]
  - Confusional state [Recovered/Resolved]

NARRATIVE: CASE EVENT DATE: 20160919
